FAERS Safety Report 4562638-0 (Version None)
Quarter: 2005Q1

REPORT INFORMATION
  Report Type: 
  Country: None (occurrence: None)
  Receive Date: 20050127
  Receipt Date: 20050111
  Transmission Date: 20050727
  Serious: Yes (Disabling)
  Sender: FDA-Public Use
  Company Number: EMADSS2002000550

PATIENT
  Age: 32 Year
  Sex: Female
  Weight: 55 kg

DRUGS (2)
  1. EPITOMAX [Suspect]
     Indication: MYOCLONIC EPILEPSY
     Route: 049
     Dates: start: 20000906
  2. DEPAKENE [Suspect]
     Indication: EPILEPSY
     Route: 049

REACTIONS (2)
  - DEAFNESS NEUROSENSORY [None]
  - SPEECH DISORDER [None]
